FAERS Safety Report 13935905 (Version 2)
Quarter: 2017Q3

REPORT INFORMATION
  Report Type: Spontaneous
  Country: HU (occurrence: HU)
  Receive Date: 20170905
  Receipt Date: 20170914
  Transmission Date: 20171127
  Serious: Yes (Life-Threatening, Hospitalization, Other)
  Sender: FDA-Public Use
  Company Number: HU-MYLANLABS-2017M1054142

PATIENT
  Sex: Female

DRUGS (1)
  1. EPIPEN [Suspect]
     Active Substance: EPINEPHRINE
     Indication: ANAPHYLACTIC REACTION
     Dosage: 2 DF, UNK

REACTIONS (4)
  - Brain injury [Unknown]
  - Drug ineffective [Unknown]
  - Dyspnoea [Unknown]
  - Coma [Unknown]
